FAERS Safety Report 19057939 (Version 1)
Quarter: 2021Q1

REPORT INFORMATION
  Report Type: Spontaneous
  Country: US (occurrence: US)
  Receive Date: 20210325
  Receipt Date: 20210325
  Transmission Date: 20210420
  Serious: Yes (Hospitalization)
  Sender: FDA-Public Use
  Company Number: None

PATIENT
  Age: 75 Year
  Sex: Male
  Weight: 71 kg

DRUGS (1)
  1. PREDNISONE. [Suspect]
     Active Substance: PREDNISONE
     Indication: ATYPICAL HAEMOLYTIC URAEMIC SYNDROME
     Route: 048

REACTIONS (3)
  - Osteonecrosis [None]
  - Bacteraemia [None]
  - Arthritis bacterial [None]

NARRATIVE: CASE EVENT DATE: 20200302
